FAERS Safety Report 4509546-9 (Version None)
Quarter: 2004Q4

REPORT INFORMATION
  Report Type: 
  Country: None (occurrence: None)
  Receive Date: 20041119
  Receipt Date: 20041110
  Transmission Date: 20050328
  Serious: Yes (Hospitalization)
  Sender: FDA-Public Use
  Company Number: 235553K04USA

PATIENT
  Age: 29 Year
  Sex: Female

DRUGS (1)
  1. REBIF [Suspect]
     Indication: MULTIPLE SCLEROSIS
     Dosage: 44 MCG, 3 IN 1 WEEKS, SUBCUTANEOUS
     Route: 058
     Dates: start: 20030130, end: 20041103

REACTIONS (10)
  - ABDOMINAL DISTENSION [None]
  - ACUTE ABDOMEN [None]
  - BACK PAIN [None]
  - BLOOD URINE PRESENT [None]
  - PERITONITIS [None]
  - PYELONEPHRITIS [None]
  - PYREXIA [None]
  - VOMITING [None]
  - WHITE BLOOD CELL COUNT INCREASED [None]
  - WHITE BLOOD CELLS URINE POSITIVE [None]
